FAERS Safety Report 15690103 (Version 1)
Quarter: 2018Q4

REPORT INFORMATION
  Report Type: Spontaneous
  Country: GB (occurrence: GB)
  Receive Date: 20181205
  Receipt Date: 20181205
  Transmission Date: 20190205
  Serious: Yes (Death)
  Sender: FDA-Public Use
  Company Number: GB-PFIZER INC-2018496969

PATIENT

DRUGS (2)
  1. STATIN [NYSTATIN] [Interacting]
     Active Substance: NYSTATIN
     Indication: FUNGAL INFECTION
     Dosage: UNK
  2. VFEND [Suspect]
     Active Substance: VORICONAZOLE
     Indication: FUNGAL INFECTION
     Dosage: UNK

REACTIONS (2)
  - Drug interaction [Fatal]
  - Renal failure [Fatal]
